FAERS Safety Report 8642658 (Version 2)
Quarter: 2012Q4

REPORT INFORMATION
  Report Type: 
  Country: US (occurrence: US)
  Receive Date: 20120629
  Receipt Date: 20120912
  Transmission Date: 20130627
  Serious: Yes (Other)
  Sender: FDA-Public Use
  Company Number: US-PAR PHARMACEUTICAL, INC-2012SCPR004457

PATIENT

DRUGS (1)
  1. ISOSORBIDE DINITRATE [Suspect]
     Indication: PRODUCT USED FOR UNKNOWN INDICATION
     Dosage: UNK, Unknown
     Route: 065

REACTIONS (5)
  - Chest discomfort [Unknown]
  - Oedema peripheral [Unknown]
  - Product taste abnormal [Unknown]
  - Dysgeusia [Unknown]
  - Product quality issue [Unknown]
